FAERS Safety Report 25500674 (Version 1)
Quarter: 2025Q3

REPORT INFORMATION
  Report Type: Report from Study
  Country: US (occurrence: US)
  Receive Date: 20250701
  Receipt Date: 20250701
  Transmission Date: 20251021
  Serious: Yes (Other)
  Sender: ABBVIE
  Company Number: US-ABBVIE-6347262

PATIENT
  Age: 47 Year
  Sex: Male

DRUGS (1)
  1. CREON [Suspect]
     Active Substance: PANCRELIPASE AMYLASE\PANCRELIPASE LIPASE\PANCRELIPASE PROTEASE
     Indication: Product used for unknown indication
     Route: 048
     Dates: start: 202406

REACTIONS (3)
  - Pancreatectomy [Not Recovered/Not Resolved]
  - Dyspepsia [Unknown]
  - Splenectomy [Not Recovered/Not Resolved]

NARRATIVE: CASE EVENT DATE: 20250101
